FAERS Safety Report 8167347-7 (Version None)
Quarter: 2012Q1

REPORT INFORMATION
  Report Type: 
  Country: None (occurrence: None)
  Receive Date: 20120227
  Receipt Date: 20120217
  Transmission Date: 20120608
  Serious: Yes (Other)
  Sender: FDA-Public Use
  Company Number: US-CELGENEUS-163-21880-12022269

PATIENT
  Sex: Male
  Weight: 83.99 kg

DRUGS (6)
  1. DEXAMETHASONE [Concomitant]
     Route: 065
  2. ZOCOR [Concomitant]
     Route: 065
  3. REVLIMID [Suspect]
     Indication: MULTIPLE MYELOMA
     Dosage: 5 MILLIGRAM
     Route: 048
     Dates: start: 20091201
  4. RENVELA [Concomitant]
     Route: 065
  5. PLAVIX [Concomitant]
     Route: 065
  6. LEVOTHYROXINE SODIUM [Concomitant]
     Route: 065

REACTIONS (1)
  - RENAL DISORDER [None]
